FAERS Safety Report 4838806-7 (Version None)
Quarter: 2005Q4

REPORT INFORMATION
  Report Type: 
  Country: None (occurrence: None)
  Receive Date: 20051129
  Receipt Date: 20051011
  Transmission Date: 20060501
  Serious: No
  Sender: FDA-Public Use
  Company Number: US-GLAXOSMITHKLINE-A0577791A

PATIENT
  Age: 60 Year
  Sex: Male

DRUGS (2)
  1. COMMIT [Suspect]
     Dates: start: 20051010
  2. NICODERM CQ [Suspect]

REACTIONS (6)
  - ABDOMINAL PAIN UPPER [None]
  - ACCIDENTAL EXPOSURE [None]
  - DRUG INEFFECTIVE [None]
  - NERVOUSNESS [None]
  - NICOTINE DEPENDENCE [None]
  - TREMOR [None]
